FAERS Safety Report 11929463 (Version 3)
Quarter: 2018Q3

REPORT INFORMATION
  Report Type: Report from Study
  Country: AR (occurrence: AR)
  Receive Date: 20160120
  Receipt Date: 20180814
  Transmission Date: 20181010
  Serious: Yes (Other)
  Sender: FDA-Public Use
  Company Number: PHHY2015AR171089

PATIENT
  Sex: Female

DRUGS (5)
  1. DIOVAN [Suspect]
     Active Substance: VALSARTAN
     Indication: HYPERTENSION
     Dosage: 160 OT, UNK
     Route: 065
     Dates: start: 199805
  2. DIOVAN [Suspect]
     Active Substance: VALSARTAN
     Dosage: 80 MG, QD (1 DAILY)
     Route: 065
  3. DIOVAN [Suspect]
     Active Substance: VALSARTAN
     Dosage: 160 MG, QOD
     Route: 065
  4. DIOVAN [Suspect]
     Active Substance: VALSARTAN
     Dosage: 160 MG, QD
     Route: 065
  5. EXFORGE [Suspect]
     Active Substance: AMLODIPINE BESYLATE\VALSARTAN
     Indication: HYPERTENSION
     Dosage: 1 DF, (5 MG AMLODIPINE, 12.5 MG HYDROCHLOROTHIAZIDE AND 160 MG VALSARTAN) QD
     Route: 065

REACTIONS (13)
  - Blood pressure increased [Unknown]
  - Malaise [Unknown]
  - Swelling [Recovering/Resolving]
  - Dizziness [Unknown]
  - Autoimmune thyroiditis [Unknown]
  - Oedema [Recovering/Resolving]
  - Blood thyroid stimulating hormone increased [Unknown]
  - Hypothyroidism [Unknown]
  - Overweight [Unknown]
  - Peripheral swelling [Recovering/Resolving]
  - Headache [Unknown]
  - Fear [Unknown]
  - Anxiety [Unknown]
